FAERS Safety Report 15290823 (Version 2)
Quarter: 2018Q3

REPORT INFORMATION
  Report Type: Spontaneous
  Country: US (occurrence: US)
  Receive Date: 20180817
  Receipt Date: 20180817
  Transmission Date: 20181010
  Serious: Yes (Hospitalization, Other)
  Sender: FDA-Public Use
  Company Number: US-CELGENEUS-USA-20180803168

PATIENT
  Sex: Female

DRUGS (3)
  1. OTEZLA [Suspect]
     Active Substance: APREMILAST
     Indication: PSORIASIS
     Dosage: 60 MILLIGRAM
     Route: 048
     Dates: start: 20180615
  2. VITAMINS [Concomitant]
     Active Substance: VITAMINS
     Indication: PRODUCT USED FOR UNKNOWN INDICATION
     Route: 065
  3. CORTISONE [Concomitant]
     Active Substance: CORTISONE\HYDROCORTISONE
     Indication: URTICARIA
     Route: 065
     Dates: start: 2018

REACTIONS (10)
  - Dry skin [Recovered/Resolved]
  - Skin exfoliation [Not Recovered/Not Resolved]
  - Nausea [Recovered/Resolved]
  - Psoriasis [Not Recovered/Not Resolved]
  - Rash erythematous [Not Recovered/Not Resolved]
  - Blood potassium abnormal [Not Recovered/Not Resolved]
  - Vomiting [Not Recovered/Not Resolved]
  - Blood magnesium abnormal [Not Recovered/Not Resolved]
  - Abdominal distension [Not Recovered/Not Resolved]
  - Dizziness [Not Recovered/Not Resolved]

NARRATIVE: CASE EVENT DATE: 2018
